FAERS Safety Report 9345565 (Version 1)
Quarter: 2013Q2

REPORT INFORMATION
  Report Type: Spontaneous
  Country: FR (occurrence: FR)
  Receive Date: 20130613
  Receipt Date: 20130613
  Transmission Date: 20140414
  Serious: Yes (Other)
  Sender: FDA-Public Use
  Company Number: FR-JNJFOC-20130604190

PATIENT
  Age: 19 Year
  Sex: Male

DRUGS (1)
  1. REMICADE [Suspect]
     Indication: PRODUCT USED FOR UNKNOWN INDICATION
     Dosage: SECOND INFUSION
     Route: 042

REACTIONS (3)
  - Hypersensitivity [Unknown]
  - Flushing [Unknown]
  - Respiratory disorder [Unknown]
